FAERS Safety Report 9290164 (Version 2)
Quarter: 2013Q2

REPORT INFORMATION
  Report Type: Spontaneous
  Country: US (occurrence: US)
  Receive Date: 20130515
  Receipt Date: 20130521
  Transmission Date: 20140414
  Serious: Yes (Hospitalization)
  Sender: FDA-Public Use
  Company Number: US-PFIZER INC-2013148059

PATIENT
  Age: 69 Year
  Sex: Male

DRUGS (2)
  1. INLYTA [Suspect]
     Indication: RENAL CANCER
     Dosage: 5 MG, 2X/DAY
     Dates: start: 20130424
  2. INLYTA [Suspect]
     Dosage: 5 MG, UNK
     Dates: start: 20130426

REACTIONS (5)
  - Abdominal distension [Unknown]
  - Hypertension [Unknown]
  - Dyspepsia [Unknown]
  - Myalgia [Unknown]
  - Arthralgia [Unknown]
